FAERS Safety Report 9728052 (Version 1)
Quarter: 2013Q4

REPORT INFORMATION
  Report Type: Spontaneous
  Country: DE (occurrence: None)
  Receive Date: 20131127
  Receipt Date: 20131127
  Transmission Date: 20140711
  Serious: Yes (Disabling)
  Sender: FDA-Public Use
  Company Number: AUR-APL-2013-09863

PATIENT
  Age: 85 Year
  Sex: Female
  Weight: 45 kg

DRUGS (8)
  1. LEVOFLOXACIN (LEVOFLOXACIN) [Suspect]
     Indication: CHRONIC OBSTRUCTIVE PULMONARY DISEASE
     Route: 048
     Dates: start: 20131004, end: 20131005
  2. SIMVASTATIN (SIMVASTATIN) [Concomitant]
  3. PREDNISOLON (PREDNISOLONE) [Concomitant]
  4. CANDESARTAN (CANDESARTAN) [Concomitant]
  5. ASS (ACETYLSALICYLIC ACID) [Concomitant]
  6. OMEPRAZOL  (OMEPRAZOLE) [Concomitant]
  7. TARGIN (TARGIN) [Concomitant]
  8. INUVAIR (BEKFORM) [Concomitant]

REACTIONS (6)
  - Arthralgia [None]
  - Gait disturbance [None]
  - Muscle spasms [None]
  - Myalgia [None]
  - Venous thrombosis limb [None]
  - Tendon rupture [None]
